FAERS Safety Report 22118709 (Version 1)
Quarter: 2023Q1

REPORT INFORMATION
  Report Type: Report from Study
  Country: US (occurrence: None)
  Receive Date: 20230321
  Receipt Date: 20230321
  Transmission Date: 20230417
  Serious: Yes (Death, Hospitalization)
  Sender: FDA-Public Use
  Company Number: US-ROCHE-2994452

PATIENT
  Age: 72 Year
  Sex: Male

DRUGS (6)
  1. ATEZOLIZUMAB [Suspect]
     Active Substance: ATEZOLIZUMAB
     Indication: Thyroid cancer
     Dosage: OVER 30-60 MINUTES ON DAYS 1 AND 15.
     Route: 041
     Dates: start: 20190517
  2. VEMURAFENIB [Suspect]
     Active Substance: VEMURAFENIB
     Indication: Thyroid cancer
     Dosage: BID ON DAYS 1-21
     Route: 048
     Dates: start: 20190517
  3. COBIMETINIB [Suspect]
     Active Substance: COBIMETINIB
     Indication: Thyroid cancer
     Dosage: ONCE IN DAY FOR ON DAYS 1-21
     Route: 048
     Dates: start: 20190517
  4. BEVACIZUMAB [Suspect]
     Active Substance: BEVACIZUMAB
     Indication: Thyroid cancer
     Route: 042
     Dates: start: 20190517
  5. PACLITAXEL [Suspect]
     Active Substance: PACLITAXEL
     Indication: Thyroid cancer
     Dosage: OVER 30 MINUTES ON DAYS 1, 8, AND 15
     Route: 042
     Dates: start: 20190517
  6. PACLITAXEL [Suspect]
     Active Substance: PACLITAXEL
     Indication: Thyroid cancer
     Dosage: OVER 30 MINUTES ON DAY 1
     Route: 042
     Dates: start: 20190517

REACTIONS (3)
  - Dyspnoea [Recovered/Resolved]
  - Hypoxia [Recovered/Resolved]
  - Dyspnoea [Fatal]

NARRATIVE: CASE EVENT DATE: 20211229
